FAERS Safety Report 5145221-8 (Version None)
Quarter: 2006Q4

REPORT INFORMATION
  Report Type: 
  Country: None (occurrence: None)
  Receive Date: 20061107
  Receipt Date: 20061023
  Transmission Date: 20070319
  Serious: Yes (Hospitalization)
  Sender: FDA-Public Use
  Company Number: GB-BRISTOL-MYERS SQUIBB COMPANY-13552179

PATIENT
  Sex: Male

DRUGS (3)
  1. REYATAZ [Suspect]
  2. RITONAVIR [Suspect]
  3. TRUVADA [Suspect]
     Dosage: EMTRICITABINE 200 MG + TENOFOVIR DISOPROXIL 245 MG

REACTIONS (2)
  - RENAL COLIC [None]
  - RENAL PAIN [None]
